FAERS Safety Report 23561788 (Version 2)
Quarter: 2024Q1

REPORT INFORMATION
  Report Type: Report from Study
  Country: DE (occurrence: DE)
  Receive Date: 20240225
  Receipt Date: 20240322
  Transmission Date: 20240410
  Serious: Yes (Hospitalization)
  Sender: FDA-Public Use
  Company Number: DE-ABBVIE-5649857

PATIENT
  Age: 34 Year
  Sex: Male
  Weight: 77 kg

DRUGS (11)
  1. RISANKIZUMAB [Suspect]
     Active Substance: RISANKIZUMAB
     Indication: Crohn^s disease
     Route: 058
     Dates: start: 20231227
  2. RISANKIZUMAB [Suspect]
     Active Substance: RISANKIZUMAB
     Indication: Crohn^s disease
     Route: 042
     Dates: start: 20230929, end: 20231127
  3. ENTYVIO [Concomitant]
     Active Substance: VEDOLIZUMAB
     Indication: Crohn^s disease
     Route: 042
  4. SALOFALK [Concomitant]
     Indication: Crohn^s disease
     Dosage: TIME INTERVAL: AS NECESSARY
     Route: 054
     Dates: start: 20191014
  5. ESCITALOPRAM [Concomitant]
     Active Substance: ESCITALOPRAM OXALATE
     Indication: Anxiety disorder
     Dosage: TIME INTERVAL: AS NECESSARY
     Route: 048
     Dates: start: 2019
  6. TAVOR [Concomitant]
     Indication: Anxiety disorder
     Dosage: TIME INTERVAL: AS NECESSARY
     Route: 048
     Dates: start: 201911
  7. FOLIC ACID [Concomitant]
     Active Substance: FOLIC ACID
     Indication: Folate deficiency
     Route: 048
     Dates: start: 20200124
  8. ACETAMINOPHEN [Concomitant]
     Active Substance: ACETAMINOPHEN
     Indication: Pain
     Dosage: TIME INTERVAL: AS NECESSARY
     Route: 048
     Dates: start: 202010
  9. CHOLECALCIFEROL [Concomitant]
     Active Substance: CHOLECALCIFEROL
     Indication: Vitamin D deficiency
     Route: 048
     Dates: start: 202101
  10. CALCIUM [Concomitant]
     Active Substance: CALCIUM
     Indication: Osteoporosis
     Route: 048
     Dates: start: 202301
  11. METEX [Concomitant]
     Indication: Crohn^s disease
     Route: 058
     Dates: start: 20210218

REACTIONS (1)
  - Nephrolithiasis [Recovered/Resolved]
